FAERS Safety Report 9648693 (Version 1)
Quarter: 2013Q4

REPORT INFORMATION
  Report Type: Spontaneous
  Country: US (occurrence: US)
  Receive Date: 20131028
  Receipt Date: 20131028
  Transmission Date: 20140711
  Serious: No
  Sender: FDA-Public Use
  Company Number: US-MYLANLABS-2013S1004138

PATIENT
  Age: 12 Year
  Sex: Male
  Weight: 49.9 kg

DRUGS (2)
  1. RISPERIDONE TABLETS USP [Suspect]
     Route: 048
     Dates: start: 20120828, end: 20120912
  2. INTUNIV [Concomitant]

REACTIONS (1)
  - Rash [Recovered/Resolved]
